FAERS Safety Report 8934527 (Version 1)
Quarter: 2012Q4

REPORT INFORMATION
  Report Type: 
  Country: US (occurrence: US)
  Receive Date: 20121129
  Receipt Date: 20121129
  Transmission Date: 20130627
  Serious: No
  Sender: FDA-Public Use
  Company Number: US-GLAXOSMITHKLINE-A0977154A

PATIENT
  Age: 45 Year
  Sex: Female

DRUGS (3)
  1. FLOVENT [Suspect]
     Indication: ASTHMA
     Dosage: 1PUFF Twice per day
     Route: 055
     Dates: start: 201204, end: 20120507
  2. PAXIL [Concomitant]
  3. ALLERGY MEDICATION [Concomitant]

REACTIONS (10)
  - Dizziness [Unknown]
  - Dizziness [Unknown]
  - Nausea [Unknown]
  - Diarrhoea [Unknown]
  - Vomiting [Unknown]
  - Anger [Unknown]
  - Anxiety [Unknown]
  - Palpitations [Unknown]
  - Agitation [Unknown]
  - Steroid activity [Unknown]
